FAERS Safety Report 6984072-6 (Version None)
Quarter: 2010Q3

REPORT INFORMATION
  Report Type: 
  Country: None (occurrence: None)
  Receive Date: 20100915
  Receipt Date: 20090521
  Transmission Date: 20110219
  Serious: No
  Sender: FDA-Public Use
  Company Number: US-WYE-H09457409

PATIENT
  Age: 7 Year
  Sex: Female
  Weight: 22.25 kg

DRUGS (1)
  1. ADVIL LIQUI-GELS [Suspect]
     Indication: JOINT SPRAIN
     Dosage: 1 LIQUI-GEL X 1
     Route: 048
     Dates: start: 20090521, end: 20090521

REACTIONS (2)
  - DRUG ADMINISTRATION ERROR [None]
  - ORAL DISCOMFORT [None]
